FAERS Safety Report 15356482 (Version 2)
Quarter: 2018Q4

REPORT INFORMATION
  Report Type: Spontaneous
  Country: JP (occurrence: JP)
  Receive Date: 20180906
  Receipt Date: 20181010
  Transmission Date: 20190204
  Serious: Yes (Other)
  Sender: FDA-Public Use
  Company Number: JP-MYLANLABS-2018M1064609

PATIENT
  Age: 20 Year
  Sex: Male

DRUGS (6)
  1. HEMONASE [Concomitant]
     Indication: PRODUCT USED FOR UNKNOWN INDICATION
     Dosage: 1 DF, TID
     Route: 048
     Dates: start: 201808
  2. CIMETIDINE [Concomitant]
     Active Substance: CIMETIDINE
     Indication: PRODUCT USED FOR UNKNOWN INDICATION
     Dosage: 200 MG, BID
     Route: 048
     Dates: start: 201808
  3. POSTERISAN                         /00028601/ [Concomitant]
     Indication: PRODUCT USED FOR UNKNOWN INDICATION
     Dosage: 2 G, BID
     Route: 054
     Dates: start: 201808
  4. MAGNESIUM OXIDE ^HOEI^ [Suspect]
     Active Substance: MAGNESIUM OXIDE
     Indication: CONSTIPATION
     Dosage: 0.33 G, TID
     Route: 048
     Dates: start: 20180728, end: 20180831
  5. TEPRENONE [Concomitant]
     Active Substance: TEPRENONE
     Indication: CONSTIPATION
     Dosage: 0.5 G, TID
     Route: 048
     Dates: start: 20180728, end: 20180831
  6. BERIZYM                            /01945301/ [Concomitant]
     Indication: CONSTIPATION
     Dosage: 0.5 G, TID
     Route: 048
     Dates: start: 20180728, end: 20180831

REACTIONS (4)
  - Abdominal pain [Unknown]
  - Bradycardia [Recovered/Resolved]
  - Chest pain [Recovered/Resolved]
  - Hypermagnesaemia [Recovered/Resolved]

NARRATIVE: CASE EVENT DATE: 20180828
